FAERS Safety Report 4894865-7 (Version None)
Quarter: 2006Q1

REPORT INFORMATION
  Report Type: 
  Country: None (occurrence: None)
  Receive Date: 20060124
  Receipt Date: 20060110
  Transmission Date: 20060701
  Serious: Yes (Life-Threatening, Hospitalization)
  Sender: FDA-Public Use
  Company Number: DEU-2005-0001794

PATIENT
  Age: 83 Year
  Sex: Female
  Weight: 75 kg

DRUGS (7)
  1. OXYCODONE HCL [Suspect]
     Indication: BACK PAIN
     Dosage: 10 MG, DAILY, ORAL
     Route: 048
     Dates: start: 20051101, end: 20051101
  2. BUPRENORPHINE (BUPRENORPHINE) [Suspect]
     Indication: BACK PAIN
     Dosage: 35 MCG, Q72H, TRANSDERMAL
     Route: 062
     Dates: start: 20050928, end: 20051030
  3. AMLODIPINE [Concomitant]
  4. KARVEZIDE (HYDROCHLOROTHIAZIDE, IRBESARTAN) [Concomitant]
  5. TOREM (TORASEMIDE) [Concomitant]
  6. ACETYLSALICYLIC ACID SRT [Concomitant]
  7. METOHEXAL (METOPROLOL TARTRATE) [Concomitant]

REACTIONS (4)
  - ANXIETY [None]
  - BLOOD PRESSURE INCREASED [None]
  - RESTLESSNESS [None]
  - SINUS TACHYCARDIA [None]
